FAERS Safety Report 9584499 (Version 2)
Quarter: 2013Q4

REPORT INFORMATION
  Report Type: Spontaneous
  Country: US (occurrence: US)
  Receive Date: 20131002
  Receipt Date: 20131002
  Transmission Date: 20140711
  Serious: No
  Sender: FDA-Public Use
  Company Number: US-AMGEN-USASP2013046128

PATIENT
  Age: 53 Year
  Sex: Female

DRUGS (2)
  1. ENBREL [Suspect]
     Indication: RHEUMATOID ARTHRITIS
     Dosage: 50 MG, QWK
     Route: 058
     Dates: start: 20130625
  2. ENBREL [Suspect]
     Dosage: UNK
     Route: 065

REACTIONS (6)
  - Upper extremity mass [Unknown]
  - Local swelling [Not Recovered/Not Resolved]
  - Injection site reaction [Unknown]
  - Injection site erythema [Unknown]
  - Injection site urticaria [Not Recovered/Not Resolved]
  - Injection site pruritus [Not Recovered/Not Resolved]
